FAERS Safety Report 7546447-6 (Version None)
Quarter: 2011Q2

REPORT INFORMATION
  Report Type: 
  Country: None (occurrence: None)
  Receive Date: 20110614
  Receipt Date: 20110525
  Transmission Date: 20111010
  Serious: Yes (Other)
  Sender: FDA-Public Use
  Company Number: US-JNJFOC-20110404506

PATIENT
  Sex: Female

DRUGS (4)
  1. ULTRAM [Suspect]
     Indication: CORONARY ARTERY BYPASS
     Dosage: AS NEEDED
     Route: 048
     Dates: start: 20070101
  2. ULTRAM [Suspect]
     Indication: PROCEDURAL PAIN
     Dosage: AS NEEDED
     Route: 048
     Dates: start: 20070101
  3. ULTRAM SR [Suspect]
     Indication: PRODUCT USED FOR UNKNOWN INDICATION
     Dosage: AS NEEDED
     Route: 048
     Dates: start: 20110301
  4. CELEBREX [Suspect]
     Indication: ARTHRALGIA
     Route: 048

REACTIONS (9)
  - ULCER [None]
  - SCAR [None]
  - ARTHRALGIA [None]
  - FALL [None]
  - HEAD INJURY [None]
  - DEPRESSION [None]
  - DIZZINESS [None]
  - FEELING ABNORMAL [None]
  - HAEMORRHAGE [None]
